FAERS Safety Report 9774736 (Version 1)
Quarter: 2013Q4

REPORT INFORMATION
  Report Type: Spontaneous
  Country: US (occurrence: US)
  Receive Date: 20131220
  Receipt Date: 20131220
  Transmission Date: 20140711
  Serious: Yes (Other)
  Sender: FDA-Public Use
  Company Number: US-ELI_LILLY_AND_COMPANY-US201312005888

PATIENT
  Sex: 0

DRUGS (2)
  1. GEMCITABINE HYDROCHLORIDE [Suspect]
     Indication: NEOPLASM MALIGNANT
     Dosage: 1560 MG/M2, OTHER
     Route: 042
  2. MISTLETOE EXTRACT [Suspect]
     Indication: NEOPLASM MALIGNANT
     Dosage: 250 MG, QD
     Route: 058

REACTIONS (1)
  - Renal failure acute [Unknown]
